FAERS Safety Report 18197479 (Version 1)
Quarter: 2020Q3

REPORT INFORMATION
  Report Type: Spontaneous
  Country: US (occurrence: US)
  Receive Date: 20200826
  Receipt Date: 20200826
  Transmission Date: 20201103
  Serious: Yes (Other)
  Sender: FDA-Public Use
  Company Number: US-MYLANLABS-2020M1074062

PATIENT
  Sex: Male

DRUGS (3)
  1. AZACITIDINE. [Suspect]
     Active Substance: AZACITIDINE
     Indication: MYELODYSPLASTIC SYNDROME
     Dosage: 43 CYCLES
     Route: 065
     Dates: start: 201305, end: 201611
  2. DECITABINE. [Suspect]
     Active Substance: DECITABINE
     Indication: MYELODYSPLASTIC SYNDROME
     Dosage: 15 CYCLES
     Route: 065
     Dates: start: 201611, end: 201802
  3. DEXTROSE. [Concomitant]
     Active Substance: DEXTROSE
     Indication: PRODUCT USED FOR UNKNOWN INDICATION
     Dosage: IGF METHOTREXATE IV INFUSION IN 250ML OF 5% GLUCOSE ON DAYS 1, 8...

REACTIONS (1)
  - Drug ineffective [Unknown]
